FAERS Safety Report 13771201 (Version 1)
Quarter: 2017Q3

REPORT INFORMATION
  Report Type: Spontaneous
  Country: US (occurrence: US)
  Receive Date: 20170720
  Receipt Date: 20170720
  Transmission Date: 20171127
  Serious: No
  Sender: FDA-Public Use
  Company Number: None

PATIENT
  Age: 44 Year
  Sex: Male
  Weight: 99.45 kg

DRUGS (1)
  1. ENBREL [Suspect]
     Active Substance: ETANERCEPT
     Indication: SYSTEMIC LUPUS ERYTHEMATOSUS RASH
     Dosage: ?          OTHER DOSE:MG;OTHER FREQUENCY:TWICE WEEKLY;?
     Route: 058
     Dates: start: 20170410, end: 20170705

REACTIONS (1)
  - Rash [None]

NARRATIVE: CASE EVENT DATE: 20170705
